FAERS Safety Report 24765730 (Version 2)
Quarter: 2024Q4

REPORT INFORMATION
  Report Type: Spontaneous
  Country: US (occurrence: US)
  Receive Date: 20241223
  Receipt Date: 20241227
  Transmission Date: 20250115
  Serious: Yes (Other)
  Sender: MERCK
  Company Number: US-009507513-2412USA007882

PATIENT
  Sex: Male

DRUGS (2)
  1. KEYTRUDA [Suspect]
     Active Substance: PEMBROLIZUMAB
     Dosage: UNK
  2. ASPIRIN [Concomitant]
     Active Substance: ASPIRIN

REACTIONS (9)
  - Carcinoembryonic antigen increased [Unknown]
  - Dolichocolon acquired [Unknown]
  - Decreased appetite [Recovering/Resolving]
  - Muscle atrophy [Not Recovered/Not Resolved]
  - Asthenia [Unknown]
  - Fatigue [Unknown]
  - Gastrointestinal scarring [Unknown]
  - Arthritis [Unknown]
  - Anxiety [Unknown]

NARRATIVE: CASE EVENT DATE: 20240101
